FAERS Safety Report 6143458-2 (Version None)
Quarter: 2009Q2

REPORT INFORMATION
  Report Type: 
  Country: None (occurrence: None)
  Receive Date: 20090403
  Receipt Date: 20090326
  Transmission Date: 20091009
  Serious: Yes (Other)
  Sender: FDA-Public Use
  Company Number: PHEH2009US03119

PATIENT
  Sex: Female
  Weight: 91 kg

DRUGS (7)
  1. RITALIN [Suspect]
     Indication: FATIGUE
     Dosage: ONCE DAILY
     Dates: end: 20080801
  2. REBIF [Suspect]
     Dosage: 44 MCG THREE TIMES PER WEEK
     Dates: start: 20080401, end: 20080807
  3. REBIF [Suspect]
     Dosage: UNK
     Dates: start: 20081001, end: 20081001
  4. NORVASC [Concomitant]
     Indication: BLOOD PRESSURE INCREASED
  5. EFFEXOR [Concomitant]
     Indication: DEPRESSION
  6. ZOCOR [Concomitant]
     Indication: BLOOD CHOLESTEROL INCREASED
  7. MOTRIN [Concomitant]
     Indication: PAIN
     Dosage: 800 MG, PRN

REACTIONS (10)
  - ANXIETY [None]
  - CONVULSION [None]
  - FALL [None]
  - FATIGUE [None]
  - FOAMING AT MOUTH [None]
  - HEAD INJURY [None]
  - LOSS OF CONSCIOUSNESS [None]
  - NAUSEA [None]
  - OPEN WOUND [None]
  - STARING [None]
